FAERS Safety Report 9804896 (Version 2)
Quarter: 2014Q2

REPORT INFORMATION
  Report Type: Report from Study
  Country: EG (occurrence: EG)
  Receive Date: 20140108
  Receipt Date: 20140603
  Transmission Date: 20141212
  Serious: No
  Sender: FDA-Public Use
  Company Number: PHHY2013EG101173

PATIENT
  Age: 7 Year
  Sex: Male

DRUGS (1)
  1. ICL670A [Suspect]
     Indication: HAEMOSIDEROSIS
     Dosage: UNK UKN, UNK
     Route: 048
     Dates: start: 20120901

REACTIONS (5)
  - Infection [Unknown]
  - Haemoglobin decreased [Unknown]
  - Hydronephrosis [Unknown]
  - Micturition urgency [Unknown]
  - Dysuria [Unknown]
